FAERS Safety Report 4571832-4 (Version None)
Quarter: 2005Q1

REPORT INFORMATION
  Report Type: 
  Country: None (occurrence: None)
  Receive Date: 20050207
  Receipt Date: 20050203
  Transmission Date: 20050727
  Serious: Yes (Hospitalization)
  Sender: FDA-Public Use
  Company Number: CA-MERCK-0502CAN00025

PATIENT
  Sex: Female

DRUGS (4)
  1. VIOXX [Suspect]
     Indication: PAIN
     Route: 048
     Dates: start: 20000701, end: 20030101
  2. VITAMINS (UNSPECIFIED) [Concomitant]
     Route: 065
  3. [THERAPY UNSPECIFIED] [Concomitant]
     Indication: BONE DISORDER
     Route: 065
  4. OCTREOTIDE [Concomitant]
     Indication: SALIVARY GLAND NEOPLASM
     Route: 065
     Dates: end: 20040101

REACTIONS (1)
  - MYOCARDIAL INFARCTION [None]
